FAERS Safety Report 17802289 (Version 1)
Quarter: 2020Q2

REPORT INFORMATION
  Report Type: Report from Study
  Country: US (occurrence: US)
  Receive Date: 20200519
  Receipt Date: 20200519
  Transmission Date: 20200714
  Serious: Yes (Other)
  Sender: FDA-Public Use
  Company Number: US-MYLANLABS-2020M1048893

PATIENT
  Age: 47 Year
  Sex: Male

DRUGS (2)
  1. CEFTAROLINE [Concomitant]
     Active Substance: CEFTAROLINE
     Indication: ENTEROCOCCAL INFECTION
     Dosage: UNK
     Route: 065
  2. DAPTOMYCIN. [Suspect]
     Active Substance: DAPTOMYCIN
     Indication: ENTEROCOCCAL INFECTION
     Dosage: 9 MILLIGRAM/KILOGRAM
     Route: 065

REACTIONS (1)
  - Pathogen resistance [Unknown]
